FAERS Safety Report 6268139-6 (Version None)
Quarter: 2009Q3

REPORT INFORMATION
  Report Type: 
  Country: None (occurrence: None)
  Receive Date: 20090715
  Receipt Date: 20090709
  Transmission Date: 20100115
  Serious: Yes (Hospitalization)
  Sender: FDA-Public Use
  Company Number: US-BIOGENIDEC-2009BI017148

PATIENT
  Age: 47 Year
  Sex: Female

DRUGS (1)
  1. AVONEX [Suspect]
     Indication: MULTIPLE SCLEROSIS
     Route: 030
     Dates: start: 20090421

REACTIONS (5)
  - CARDIAC FAILURE CONGESTIVE [None]
  - DIZZINESS [None]
  - PNEUMONIA [None]
  - SENSATION OF HEAVINESS [None]
  - SOMNOLENCE [None]
